FAERS Safety Report 13306461 (Version 2)
Quarter: 2017Q2

REPORT INFORMATION
  Report Type: Spontaneous
  Country: US (occurrence: US)
  Receive Date: 20170308
  Receipt Date: 20170428
  Transmission Date: 20170830
  Serious: Yes (Other)
  Sender: FDA-Public Use
  Company Number: US-BAYER-2017-042870

PATIENT
  Age: 19 Year
  Sex: Female

DRUGS (4)
  1. MACROBID [Concomitant]
     Active Substance: NITROFURANTOIN\NITROFURANTOIN MONOHYDRATE
     Dosage: 100 MG, UNK
     Route: 048
  2. LEXAPRO [Concomitant]
     Active Substance: ESCITALOPRAM OXALATE
     Dosage: 5 MG, UNK
     Route: 048
  3. AMITRIPTYLINE [Concomitant]
     Active Substance: AMITRIPTYLINE
     Dosage: 25 MG, UNK
  4. KYLEENA [Suspect]
     Active Substance: LEVONORGESTREL
     Indication: CONTRACEPTION
     Dosage: 17.5 MG, CONT
     Route: 015
     Dates: start: 20170111

REACTIONS (4)
  - Device dislocation [None]
  - Genital haemorrhage [None]
  - Post procedural discomfort [None]
  - Coital bleeding [None]

NARRATIVE: CASE EVENT DATE: 20170302
